FAERS Safety Report 8574771-7 (Version None)
Quarter: 2012Q3

REPORT INFORMATION
  Report Type: 
  Country: None (occurrence: None)
  Receive Date: 20120807
  Receipt Date: 20120728
  Transmission Date: 20120928
  Serious: Yes (Other)
  Sender: FDA-Public Use
  Company Number: US-PAR PHARMACEUTICAL, INC-2012SCPR004534

PATIENT

DRUGS (8)
  1. CLONAZEPAM [Suspect]
     Indication: PRODUCT USED FOR UNKNOWN INDICATION
     Dosage: 1 MG, AT BEDTIME
     Route: 065
  2. DIVALPROEX SODIUM EXTENDED RELEASE [Suspect]
     Dosage: 2000 MG, / DAY
     Route: 065
  3. MIRTAZAPINE [Suspect]
     Indication: PRODUCT USED FOR UNKNOWN INDICATION
     Dosage: 30 MG, AT BEDTIME
     Route: 065
  4. QUETIAPINE [Suspect]
     Indication: DELUSION
     Dosage: 100 MG (IR FORMULATION), AS NEEDED
     Route: 065
  5. DIVALPROEX SODIUM EXTENDED RELEASE [Suspect]
     Indication: PSYCHOTIC DISORDER
     Dosage: 1500 MG, UNKNOWN
     Route: 065
  6. QUETIAPINE [Suspect]
     Dosage: 800 MG  (XR FORMULATION ), / DAY
     Route: 065
  7. QUETIAPINE [Suspect]
     Dosage: 300 MG, (XR FORMULATION )
     Route: 065
  8. QUETIAPINE [Suspect]
     Dosage: 400 MG, (XR FORMULATION )
     Route: 065

REACTIONS (2)
  - WHITE BLOOD CELL COUNT DECREASED [None]
  - NEUTROPENIA [None]
